FAERS Safety Report 21017496 (Version 1)
Quarter: 2022Q2

REPORT INFORMATION
  Report Type: Spontaneous
  Country: CN (occurrence: CN)
  Receive Date: 20220628
  Receipt Date: 20220628
  Transmission Date: 20220721
  Serious: Yes (Hospitalization, Other)
  Sender: FDA-Public Use
  Company Number: CN-009507513-2206CHN007640

PATIENT
  Age: 53 Year
  Sex: Male
  Weight: 70 kg

DRUGS (4)
  1. KEYTRUDA [Suspect]
     Active Substance: PEMBROLIZUMAB
     Indication: Squamous cell carcinoma of head and neck
     Dosage: 140 MG, EVERY 21 DAYS
     Route: 041
     Dates: start: 20210201, end: 20220101
  2. BEVACIZUMAB [Suspect]
     Active Substance: BEVACIZUMAB
     Indication: Squamous cell carcinoma of head and neck
     Dosage: 1050 MG, EVERY 14 DAYS
     Route: 041
     Dates: start: 20201101, end: 20201201
  3. NIMOTUZUMAB [Suspect]
     Active Substance: NIMOTUZUMAB
     Indication: Squamous cell carcinoma of head and neck
     Dosage: 100 MG, EVERY 7 DAYS
     Route: 041
     Dates: start: 20201201, end: 20210201
  4. TISLELIZUMAB [Suspect]
     Active Substance: TISLELIZUMAB
     Indication: Squamous cell carcinoma of head and neck
     Dosage: 200 MG, EVERY 21 DAYS
     Route: 041
     Dates: start: 20201201, end: 20210201

REACTIONS (5)
  - Pneumocystis jirovecii pneumonia [Recovering/Resolving]
  - Underdose [Unknown]
  - Streptococcus test positive [Unknown]
  - Pneumocystis test positive [Unknown]
  - Pseudomonas test positive [Unknown]

NARRATIVE: CASE EVENT DATE: 20220114
